FAERS Safety Report 18815441 (Version 1)
Quarter: 2021Q1

REPORT INFORMATION
  Report Type: Spontaneous
  Country: US (occurrence: US)
  Receive Date: 20210130
  Receipt Date: 20210130
  Transmission Date: 20210419
  Serious: Yes (Hospitalization)
  Sender: FDA-Public Use
  Company Number: None

PATIENT
  Age: 73 Year
  Sex: Female
  Weight: 65.6 kg

DRUGS (23)
  1. CHOLECALCIFEROL [Concomitant]
     Active Substance: CHOLECALCIFEROL
  2. VITAMIN C [Concomitant]
     Active Substance: ASCORBIC ACID
  3. LISINOPRIL. [Concomitant]
     Active Substance: LISINOPRIL
  4. VITAMIN C [Concomitant]
     Active Substance: ASCORBIC ACID
  5. ZINC. [Concomitant]
     Active Substance: ZINC
  6. ALBUTEROL. [Concomitant]
     Active Substance: ALBUTEROL
  7. BAMLANIVIMAB. [Suspect]
     Active Substance: BAMLANIVIMAB
     Indication: COVID-19
     Route: 042
     Dates: start: 20210118, end: 20210118
  8. COVID CONVALESCENT PLASMA [Concomitant]
     Active Substance: COVID-19 CONVALESCENT PLASMA
  9. NEURONTIN [Concomitant]
     Active Substance: GABAPENTIN
  10. DUO?NEB [Concomitant]
  11. LIPITOR [Concomitant]
     Active Substance: ATORVASTATIN CALCIUM
  12. FLONASE [Concomitant]
     Active Substance: FLUTICASONE PROPIONATE
  13. TRELEGY ELLIPTA [Concomitant]
     Active Substance: FLUTICASONE FUROATE\UMECLIDINIUM BROMIDE\VILANTEROL TRIFENATATE
  14. PULMICORT TURBUHALER [Concomitant]
     Active Substance: BUDESONIDE
  15. FLEXERIL [Concomitant]
     Active Substance: CYCLOBENZAPRINE HYDROCHLORIDE
  16. MULTI VIT [Concomitant]
     Active Substance: VITAMINS
  17. REMDESIVIR. [Concomitant]
     Active Substance: REMDESIVIR
  18. NOVASC [Concomitant]
  19. BROVANA [Concomitant]
     Active Substance: ARFORMOTEROL TARTRATE
  20. BENSONATATE [Concomitant]
  21. DECADRON [Concomitant]
     Active Substance: DEXAMETHASONE
  22. PEPCID [Concomitant]
     Active Substance: FAMOTIDINE
  23. MELOXICAM. [Concomitant]
     Active Substance: MELOXICAM

REACTIONS (3)
  - COVID-19 [None]
  - Acute respiratory failure [None]
  - Respiratory failure [None]

NARRATIVE: CASE EVENT DATE: 20210119
